FAERS Safety Report 14359276 (Version 1)
Quarter: 2018Q1

REPORT INFORMATION
  Report Type: Spontaneous
  Country: US (occurrence: US)
  Receive Date: 20180105
  Receipt Date: 20180105
  Transmission Date: 20180509
  Serious: No
  Sender: FDA-Public Use
  Company Number: US-SA-2017SA122884

PATIENT
  Sex: Female

DRUGS (2)
  1. BUSCO RANITIDINE [Suspect]
     Active Substance: RANITIDINE HYDROCHLORIDE
     Indication: ABDOMINAL PAIN UPPER
     Dosage: STRENGTH 150 MG
     Route: 048
     Dates: start: 201702, end: 201702
  2. BUSCO RANITIDINE [Suspect]
     Active Substance: RANITIDINE HYDROCHLORIDE
     Indication: FLATULENCE
     Dosage: STRENGTH 150 MG
     Route: 048
     Dates: start: 201702, end: 201702

REACTIONS (3)
  - Off label use [Unknown]
  - Drug ineffective [Unknown]
  - Nausea [Unknown]

NARRATIVE: CASE EVENT DATE: 201702
